FAERS Safety Report 9660843 (Version 1)
Quarter: 2013Q4

REPORT INFORMATION
  Report Type: Spontaneous
  Country: US (occurrence: US)
  Receive Date: 20131031
  Receipt Date: 20131031
  Transmission Date: 20140711
  Serious: No
  Sender: FDA-Public Use
  Company Number: US-ENDO PHARMACEUTICALS INC.-HCDA20120120

PATIENT
  Age: 59 Year
  Sex: Female

DRUGS (3)
  1. HYDROCODONE/ACETAMINOPHEN 10MG/325MG [Suspect]
     Indication: PAIN
     Dosage: 10/325 MG
     Route: 048
     Dates: start: 2005, end: 2005
  2. HYDROCODONE/ACETAMINOPHEN 10MG/325MG [Suspect]
     Dosage: 40/1300 MG
     Route: 048
     Dates: start: 201211, end: 201211
  3. HYDROCODONE/ACETAMINOPHEN 10MG/325MG [Suspect]
     Dosage: 80/2600 MG
     Route: 048
     Dates: start: 201211, end: 201211

REACTIONS (2)
  - Somnolence [Unknown]
  - Drug ineffective [Recovered/Resolved]
